FAERS Safety Report 7779176-4 (Version None)
Quarter: 2011Q3

REPORT INFORMATION
  Report Type: 
  Country: None (occurrence: None)
  Receive Date: 20110926
  Receipt Date: 20110913
  Transmission Date: 20111222
  Serious: Yes (Other)
  Sender: FDA-Public Use
  Company Number: GB-ELI_LILLY_AND_COMPANY-GB201109004600

PATIENT
  Age: 46 Year
  Sex: Female

DRUGS (2)
  1. FLUOXETINE [Suspect]
     Indication: MYASTHENIC SYNDROME
  2. QUINIDINE SULFATE [Suspect]
     Indication: MYASTHENIC SYNDROME
     Dosage: 200 MG, BID

REACTIONS (3)
  - HYPOTENSION [None]
  - LETHARGY [None]
  - OFF LABEL USE [None]
